FAERS Safety Report 17693086 (Version 1)
Quarter: 2020Q2

REPORT INFORMATION
  Report Type: Spontaneous
  Country: US (occurrence: US)
  Receive Date: 20200421
  Receipt Date: 20200421
  Transmission Date: 20200714
  Serious: No
  Sender: FDA-Public Use
  Company Number: None

PATIENT
  Sex: Female

DRUGS (30)
  1. OCALIVA [Suspect]
     Active Substance: OBETICHOLIC ACID
     Indication: PRIMARY BILIARY CHOLANGITIS
     Route: 048
     Dates: start: 20190607
  2. ATORVASTATIN [Concomitant]
     Active Substance: ATORVASTATIN
  3. CETIRIZINE [Concomitant]
     Active Substance: CETIRIZINE HYDROCHLORIDE
  4. FLUTICASONE. [Concomitant]
     Active Substance: FLUTICASONE
  5. LIDO/PRILOCN [Concomitant]
  6. PRIMIDONE. [Concomitant]
     Active Substance: PRIMIDONE
  7. PROMETHAZINE [Concomitant]
     Active Substance: PROMETHAZINE HYDROCHLORIDE
  8. RESTASIS [Concomitant]
     Active Substance: CYCLOSPORINE
  9. DOK [Concomitant]
     Active Substance: DOCUSATE SODIUM
  10. GABAPENTIN. [Concomitant]
     Active Substance: GABAPENTIN
  11. HUMALOG KWIK [Concomitant]
  12. TIZANIDINE. [Concomitant]
     Active Substance: TIZANIDINE
  13. TOPIRAMATE. [Concomitant]
     Active Substance: TOPIRAMATE
  14. TRAMADOL HCL [Concomitant]
     Active Substance: TRAMADOL HYDROCHLORIDE
  15. COMBIGAN [Concomitant]
     Active Substance: BRIMONIDINE TARTRATE\TIMOLOL MALEATE
  16. HYDROCHLOROT [Concomitant]
     Active Substance: HYDROCHLOROTHIAZIDE
  17. METOPROL TAR [Concomitant]
  18. HYDRALAZINE [Concomitant]
     Active Substance: HYDRALAZINE HYDROCHLORIDE
  19. LUMIGAN [Concomitant]
     Active Substance: BIMATOPROST
  20. COLACE [Concomitant]
     Active Substance: DOCUSATE SODIUM
  21. DIAZEPAM. [Concomitant]
     Active Substance: DIAZEPAM
  22. LEVEMIR [Concomitant]
     Active Substance: INSULIN DETEMIR
  23. PREDNISONE. [Concomitant]
     Active Substance: PREDNISONE
  24. URSODIOL. [Concomitant]
     Active Substance: URSODIOL
  25. CYCLOBENZAPR [Concomitant]
     Active Substance: CYCLOBENZAPRINE
  26. METHYLPRED [Concomitant]
     Active Substance: METHYLPREDNISOLONE
  27. OMEPRAZOLE. [Concomitant]
     Active Substance: OMEPRAZOLE
  28. AMLOD/OLMESA [Concomitant]
  29. MOMETASONE [Concomitant]
     Active Substance: MOMETASONE
  30. ONDANSETRON [Concomitant]
     Active Substance: ONDANSETRON

REACTIONS (1)
  - Neoplasm malignant [None]
